FAERS Safety Report 11320700 (Version 1)
Quarter: 2015Q3

REPORT INFORMATION
  Report Type: Spontaneous
  Country: US (occurrence: None)
  Receive Date: 20150728
  Receipt Date: 20150728
  Transmission Date: 20151125
  Serious: Yes (Life-Threatening, Hospitalization)
  Sender: FDA-Public Use
  Company Number: None

PATIENT
  Age: 44 Year
  Sex: Female
  Weight: 73.03 kg

DRUGS (1)
  1. INVANZ [Suspect]
     Active Substance: ERTAPENEM SODIUM
     Indication: URINARY TRACT INFECTION
     Route: 042
     Dates: start: 20150716

REACTIONS (3)
  - Dysarthria [None]
  - Cardio-respiratory arrest [None]
  - Unresponsive to stimuli [None]

NARRATIVE: CASE EVENT DATE: 20150716
